FAERS Safety Report 9503473 (Version 1)
Quarter: 2013Q3

REPORT INFORMATION
  Report Type: Spontaneous
  Country: RU (occurrence: RU)
  Receive Date: 20130906
  Receipt Date: 20130906
  Transmission Date: 20140515
  Serious: Yes (Other)
  Sender: FDA-Public Use
  Company Number: RU-SANOFI-AVENTIS-2013SA087799

PATIENT
  Sex: Female

DRUGS (5)
  1. MAGNESIUM LACTATE\PYRIDOXINE [Suspect]
     Indication: PRODUCT USED FOR UNKNOWN INDICATION
     Dosage: STRENGTH: 470 MG
     Route: 048
  2. CLEXANE [Suspect]
     Indication: PRODUCT USED FOR UNKNOWN INDICATION
     Route: 058
  3. VITAMINS NOS [Concomitant]
     Route: 048
  4. DUPHASTON [Concomitant]
     Dosage: STRENGTH: 10 MG
  5. UTROGESTAN [Concomitant]
     Route: 048

REACTIONS (2)
  - Abortion missed [Unknown]
  - Exposure during pregnancy [Unknown]
